FAERS Safety Report 4701160-5 (Version None)
Quarter: 2005Q2

REPORT INFORMATION
  Report Type: 
  Country: None (occurrence: None)
  Receive Date: 20050628
  Receipt Date: 20050621
  Transmission Date: 20051028
  Serious: Yes (Hospitalization)
  Sender: FDA-Public Use
  Company Number: JP-GLAXOSMITHKLINE-B0385496A

PATIENT
  Age: 6 Year
  Sex: Female
  Weight: 13 kg

DRUGS (1)
  1. ZOVIRAX [Suspect]
     Indication: VARICELLA
     Dosage: 80MGK PER DAY
     Route: 048
     Dates: start: 20050224, end: 20050228

REACTIONS (2)
  - ABDOMINAL PAIN LOWER [None]
  - URINARY RETENTION [None]
